FAERS Safety Report 16259311 (Version 4)
Quarter: 2021Q3

REPORT INFORMATION
  Report Type: Spontaneous
  Country: US (occurrence: US)
  Receive Date: 20190501
  Receipt Date: 20210823
  Transmission Date: 20211014
  Serious: Yes (Death, Other)
  Sender: FDA-Public Use
  Company Number: US-ASTRAZENECA-2018SF65309

PATIENT
  Age: 23889 Day
  Sex: Female
  Weight: 87.1 kg

DRUGS (30)
  1. HYDROCODONE [Concomitant]
     Active Substance: HYDROCODONE
  2. LUNESTA [Concomitant]
     Active Substance: ESZOPICLONE
  3. CLINDAMYCIN. [Concomitant]
     Active Substance: CLINDAMYCIN
     Dates: start: 20131015
  4. LEVOTHYROXIN [Concomitant]
     Active Substance: LEVOTHYROXINE
     Dates: start: 20140818
  5. BUPROPION. [Concomitant]
     Active Substance: BUPROPION
     Dates: start: 20140826
  6. PROAIR HFA [Concomitant]
     Active Substance: ALBUTEROL SULFATE
     Dates: start: 20171031
  7. ASPIRIN. [Concomitant]
     Active Substance: ASPIRIN
     Dates: start: 20181026
  8. QUINAPRIL. [Concomitant]
     Active Substance: QUINAPRIL
  9. CELEBREX [Concomitant]
     Active Substance: CELECOXIB
  10. FUROSEMIDE. [Concomitant]
     Active Substance: FUROSEMIDE
     Dates: start: 20181108
  11. GABAPENTIN. [Concomitant]
     Active Substance: GABAPENTIN
  12. ESZOPICLONE. [Concomitant]
     Active Substance: ESZOPICLONE
     Dates: start: 20140930
  13. INSULIN ASPART [Concomitant]
     Active Substance: INSULIN ASPART
     Dates: start: 20181026
  14. SPIRONOLACTONE. [Concomitant]
     Active Substance: SPIRONOLACTONE
  15. AZITHROMYCIN ANHYDROUS. [Concomitant]
     Active Substance: AZITHROMYCIN ANHYDROUS
  16. METOPROL TAR [Concomitant]
     Dates: start: 20140219
  17. NIFEDIPINE. [Concomitant]
     Active Substance: NIFEDIPINE
     Dates: start: 20181207
  18. CLOBETASOL [Concomitant]
     Active Substance: CLOBETASOL
  19. NOVOLOG [Concomitant]
     Active Substance: INSULIN ASPART
  20. LIDODERM [Concomitant]
     Active Substance: LIDOCAINE
  21. PRILOSEC [Suspect]
     Active Substance: OMEPRAZOLE MAGNESIUM
     Dosage: FOR VARIOUS AND DATES
     Route: 048
  22. TIZANIDINE. [Concomitant]
     Active Substance: TIZANIDINE
  23. PLAVIX [Concomitant]
     Active Substance: CLOPIDOGREL BISULFATE
  24. TERBINAFINE. [Concomitant]
     Active Substance: TERBINAFINE
  25. AMLODIPINE [Concomitant]
     Active Substance: AMLODIPINE BESYLATE
  26. VITAMIN D [Concomitant]
     Active Substance: VITAMIN D NOS
  27. NEXIUM [Suspect]
     Active Substance: ESOMEPRAZOLE MAGNESIUM
     Dosage: FOR VARIOUS AND DATES
     Route: 048
  28. METHYLPRED [Concomitant]
     Active Substance: METHYLPREDNISOLONE
     Dates: start: 20120322
  29. KLOR?CON [Concomitant]
     Active Substance: POTASSIUM CHLORIDE
     Dates: start: 20140131
  30. CRESTOR [Concomitant]
     Active Substance: ROSUVASTATIN CALCIUM
     Dates: start: 20140930

REACTIONS (4)
  - Renal failure [Unknown]
  - Rebound acid hypersecretion [Unknown]
  - Chronic kidney disease [Unknown]
  - Renal injury [Unknown]

NARRATIVE: CASE EVENT DATE: 20131030
